FAERS Safety Report 16290252 (Version 4)
Quarter: 2019Q2

REPORT INFORMATION
  Report Type: Report from Study
  Country: IE (occurrence: IE)
  Receive Date: 20190509
  Receipt Date: 20190603
  Transmission Date: 20190711
  Serious: Yes (Hospitalization, Other)
  Sender: FDA-Public Use
  Company Number: IE-JNJFOC-20190503607

PATIENT
  Sex: Male

DRUGS (11)
  1. VALTREX [Concomitant]
     Active Substance: VALACYCLOVIR HYDROCHLORIDE
     Dosage: AS PER CHEMO PRESCRIPTION
     Route: 050
  2. ROSUVASTATIN. [Concomitant]
     Active Substance: ROSUVASTATIN
     Route: 050
  3. NEXIUM [Concomitant]
     Active Substance: ESOMEPRAZOLE MAGNESIUM
     Route: 050
  4. FOLIC ACID. [Concomitant]
     Active Substance: FOLIC ACID
     Route: 050
  5. COVERSYL ARGININE [Concomitant]
     Active Substance: PERINDOPRIL ARGININE
     Route: 050
  6. SERETIDE [Concomitant]
     Active Substance: FLUTICASONE PROPIONATE\SALMETEROL XINAFOATE
     Route: 050
  7. AZITHROMYCIN ANHYDROUS. [Concomitant]
     Active Substance: AZITHROMYCIN ANHYDROUS
     Dosage: AS PER CHEMO PRESCRIPTION
     Route: 050
  8. FUROSEMIDE. [Concomitant]
     Active Substance: FUROSEMIDE
     Route: 050
  9. ALLOPURINOL. [Concomitant]
     Active Substance: ALLOPURINOL
     Route: 050
  10. SEPTRIN [Concomitant]
     Active Substance: SULFAMETHOXAZOLE\TRIMETHOPRIM
     Dosage: AS PER CHEMO PRESCRIPTION
     Route: 050
  11. IMBRUVICA [Suspect]
     Active Substance: IBRUTINIB
     Indication: CHRONIC LYMPHOCYTIC LEUKAEMIA
     Route: 048
     Dates: start: 20190412

REACTIONS (8)
  - Pulmonary oedema [Recovering/Resolving]
  - Hypergammaglobulinaemia [Unknown]
  - Decreased appetite [Unknown]
  - Lung neoplasm malignant [Unknown]
  - Insomnia [Unknown]
  - Product dose omission [Unknown]
  - Asthenia [Unknown]
  - Malaise [Unknown]
